FAERS Safety Report 25129232 (Version 1)
Quarter: 2025Q1

REPORT INFORMATION
  Report Type: Other
  Country: CA (occurrence: CA)
  Receive Date: 20250327
  Receipt Date: 20250327
  Transmission Date: 20250409
  Serious: Yes (Disabling)
  Sender: APOTEX
  Company Number: CA-APOTEX-2025AP003542

PATIENT
  Age: 33 Year
  Sex: Female
  Weight: 89.796 kg

DRUGS (1)
  1. PREGABALIN [Suspect]
     Active Substance: PREGABALIN
     Indication: Neuralgia
     Dosage: 50 MILLIGRAM, BID
     Route: 048

REACTIONS (2)
  - Loss of personal independence in daily activities [Recovered/Resolved]
  - Somnolence [Recovered/Resolved]
